FAERS Safety Report 7460928-5 (Version None)
Quarter: 2011Q2

REPORT INFORMATION
  Report Type: 
  Country: None (occurrence: None)
  Receive Date: 20110505
  Receipt Date: 20110503
  Transmission Date: 20111010
  Serious: Yes (Death, Hospitalization)
  Sender: FDA-Public Use
  Company Number: BE-CEPHALON-2010006604

PATIENT
  Sex: Male
  Weight: 86 kg

DRUGS (10)
  1. PROCORALAN [Concomitant]
     Dates: start: 20101019
  2. ZOVIRAX [Concomitant]
     Dates: start: 20100406
  3. OMEPRAZOLE [Concomitant]
     Dates: start: 20101218
  4. BACTRIM [Concomitant]
     Dates: start: 20100406
  5. BENDAMUSTINE HCL [Suspect]
     Dates: start: 20101228, end: 20101229
  6. FRAXIPARINE [Concomitant]
     Dates: start: 20101110
  7. BENDAMUSTINE HCL [Suspect]
     Indication: LYMPHOMA
     Dates: start: 20101202, end: 20101203
  8. NAVOBAN [Concomitant]
     Dates: start: 20101202, end: 20101217
  9. MEDROL [Concomitant]
     Dates: start: 20100914, end: 20101217
  10. CODIOVAN [Concomitant]
     Dates: start: 20100222

REACTIONS (1)
  - DYSPNOEA [None]
